FAERS Safety Report 8519467-2 (Version None)
Quarter: 2012Q3

REPORT INFORMATION
  Report Type: 
  Country: None (occurrence: None)
  Receive Date: 20120718
  Receipt Date: 20120713
  Transmission Date: 20120928
  Serious: Yes (Other)
  Sender: FDA-Public Use
  Company Number: CA-PFIZER INC-2012106027

PATIENT
  Age: 58 Year
  Sex: Male
  Weight: 81.633 kg

DRUGS (12)
  1. EFFEXOR [Suspect]
     Indication: ANXIETY
     Dosage: 175 MG, 1X/DAY
     Route: 048
     Dates: start: 20050401
  2. VENLAFAXINE HCL [Suspect]
     Indication: ANXIETY
     Dosage: 75 MG, 2X/DAY
     Dates: start: 20100402
  3. VENLAFAXINE HCL [Suspect]
     Dosage: 225 MG DAILY (75 MG AM, 150 MG PM)
     Dates: start: 20110501
  4. LORAZEPAM [Concomitant]
     Indication: FEELING OF RELAXATION
     Dosage: 1 MG, EVERY NIGHT
     Dates: start: 20040101
  5. PANTOPRAZOLE [Concomitant]
     Indication: PROPHYLAXIS
     Dosage: 40 MG, 1X/DAY
     Dates: start: 20040101
  6. CYCLOBENZAPRINE [Concomitant]
     Indication: BACK INJURY
     Dosage: 10 MG, 1X/DAY
  7. VENLAFAXINE HCL [Suspect]
     Dosage: 37.5 MG, 3X/DAY
     Dates: start: 20120420
  8. EFFEXOR [Suspect]
     Indication: DEPRESSION
     Dosage: 150 MG, 1X/DAY
     Route: 048
     Dates: start: 20030601
  9. VENLAFAXINE HCL [Suspect]
     Dosage: 150 MG, 1X/DAY
     Dates: start: 20120604
  10. ZOPICLONE [Concomitant]
     Indication: SLEEP DISORDER
     Dosage: 7.5 MG,(2 TABS)  EVERY NIGHT
     Dates: start: 20040101
  11. EFFEXOR [Suspect]
     Dosage: 150 MG, 1X/DAY
     Route: 048
     Dates: start: 20061101, end: 20060101
  12. VENLAFAXINE HCL [Suspect]
     Indication: DEPRESSION
     Dosage: 150 MG, 1X/DAY
     Dates: start: 20100101

REACTIONS (5)
  - LIBIDO DECREASED [None]
  - ERECTILE DYSFUNCTION [None]
  - BACK INJURY [None]
  - POVERTY [None]
  - FLAT AFFECT [None]
